FAERS Safety Report 9795325 (Version 1)
Quarter: 2014Q1

REPORT INFORMATION
  Report Type: Spontaneous
  Country: US (occurrence: US)
  Receive Date: 20140103
  Receipt Date: 20140103
  Transmission Date: 20141002
  Serious: No
  Sender: FDA-Public Use
  Company Number: US-009507513-1401USA000179

PATIENT
  Sex: Female

DRUGS (4)
  1. VICTRELIS [Suspect]
     Indication: CHRONIC HEPATITIS C
     Dosage: 800 MG, TID
     Route: 048
  2. PEGASYS [Suspect]
     Indication: CHRONIC HEPATITIS C
     Dosage: (180 UNIT NOT REPORTED,1 IN 1 WK
     Dates: start: 20131101
  3. COPEGUS [Suspect]
     Indication: CHRONIC HEPATITIS C
     Dosage: 2 IN THE MORNING, 2 IN THE EVENING, 4 TOTAL (200 MG,2 IN 12 HR)
     Route: 048
     Dates: start: 20131101, end: 2013
  4. COPEGUS [Suspect]
     Dosage: 2 IN THE MORNING, 2 IN THE EVENING, 4 TOTAL (200 MG,2 IN 12 HR)
     Route: 048
     Dates: start: 2013

REACTIONS (8)
  - Feeling abnormal [Unknown]
  - Pain [Unknown]
  - Constipation [Unknown]
  - Weight decreased [Unknown]
  - Fatigue [Unknown]
  - Nausea [Unknown]
  - Decreased appetite [Unknown]
  - Dysgeusia [Unknown]
